FAERS Safety Report 8324840-1 (Version None)
Quarter: 2012Q2

REPORT INFORMATION
  Report Type: 
  Country: None (occurrence: None)
  Receive Date: 20120427
  Receipt Date: 20120404
  Transmission Date: 20120825
  Serious: No
  Sender: FDA-Public Use
  Company Number: 2135225-2012-00038

PATIENT
  Age: 62 Year
  Sex: Female

DRUGS (1)
  1. AETHOXYSKLEROL [Suspect]
     Indication: SCLEROTHERAPY
     Dosage: 8-10ML IN GSV, IV; 4-8ML IN SSV, IV
     Route: 042

REACTIONS (1)
  - PULMONARY EMBOLISM [None]
